FAERS Safety Report 13819158 (Version 1)
Quarter: 2017Q3

REPORT INFORMATION
  Report Type: Spontaneous
  Country: GB (occurrence: GB)
  Receive Date: 20170731
  Receipt Date: 20170731
  Transmission Date: 20171127
  Serious: Yes (Hospitalization)
  Sender: FDA-Public Use
  Company Number: GB-BAUSCH-BL-2017-022594

PATIENT
  Age: 37 Year
  Sex: Female

DRUGS (2)
  1. DOXAZOSIN [Concomitant]
     Active Substance: DOXAZOSIN\DOXAZOSIN MESYLATE
     Indication: ESSENTIAL HYPERTENSION
     Dates: start: 20161011
  2. DEXAMETHASONE. [Suspect]
     Active Substance: DEXAMETHASONE
     Indication: DEXAMETHASONE SUPPRESSION TEST
     Route: 048
     Dates: start: 20170118, end: 20170710

REACTIONS (4)
  - Drug prescribing error [Unknown]
  - Hypokalaemia [Recovered/Resolved]
  - Type 2 diabetes mellitus [Not Recovered/Not Resolved]
  - Secondary hypertension [Not Recovered/Not Resolved]

NARRATIVE: CASE EVENT DATE: 20170710
